FAERS Safety Report 5452184-4 (Version None)
Quarter: 2007Q3

REPORT INFORMATION
  Report Type: 
  Country: None (occurrence: None)
  Receive Date: 20070914
  Receipt Date: 20070905
  Transmission Date: 20080115
  Serious: Yes (Hospitalization)
  Sender: FDA-Public Use
  Company Number: PHHO2007JP14808

PATIENT
  Age: 72 Year
  Sex: Male

DRUGS (5)
  1. DIOVAN [Suspect]
     Indication: HYPERTENSION
     Dosage: 80 MG, QD
     Route: 048
     Dates: start: 20030526, end: 20040518
  2. DIOVAN [Suspect]
     Dosage: 120 MG, QD
     Route: 048
     Dates: start: 20040519, end: 20041110
  3. DIOVAN [Suspect]
     Dosage: 80 MG, QD
     Route: 048
     Dates: start: 20041111, end: 20060119
  4. CABERGOLINE [Concomitant]
     Indication: PARKINSON'S DISEASE
  5. MADOPAR [Concomitant]
     Indication: PARKINSON'S DISEASE
     Dosage: UNK, UNK

REACTIONS (1)
  - LUNG NEOPLASM MALIGNANT [None]
